FAERS Safety Report 13429315 (Version 1)
Quarter: 2017Q2

REPORT INFORMATION
  Report Type: Spontaneous
  Country: FR (occurrence: FR)
  Receive Date: 20170411
  Receipt Date: 20170411
  Transmission Date: 20170830
  Serious: Yes (Other)
  Sender: FDA-Public Use
  Company Number: FR-ABBVIE-17P-056-1941159-00

PATIENT
  Age: 9 Year
  Sex: Male

DRUGS (2)
  1. ENANTONE LP [Suspect]
     Active Substance: LEUPROLIDE ACETATE
     Indication: PRECOCIOUS PUBERTY
     Dosage: 11.25 MG, Q3MONTHS
     Route: 058
     Dates: start: 201406, end: 201507
  2. ENANTONE LP [Suspect]
     Active Substance: LEUPROLIDE ACETATE
     Dosage: 11.25 MG, UNK
     Route: 058
     Dates: start: 201507

REACTIONS (2)
  - Post-traumatic stress disorder [Recovering/Resolving]
  - Anxiety disorder [Recovering/Resolving]

NARRATIVE: CASE EVENT DATE: 201502
